FAERS Safety Report 11307184 (Version 2)
Quarter: 2015Q3

REPORT INFORMATION
  Report Type: Spontaneous
  Country: US (occurrence: US)
  Receive Date: 20150723
  Receipt Date: 20150820
  Transmission Date: 20151125
  Serious: No
  Sender: FDA-Public Use
  Company Number: US-ABBOTT MEDICAL OPTICS-1040674

PATIENT
  Age: 66 Year
  Sex: Female

DRUGS (1)
  1. BLINK TEARS [Suspect]
     Active Substance: POLYETHYLENE GLYCOL 400
     Indication: DRY EYE
     Route: 047

REACTIONS (2)
  - Product container issue [None]
  - Physical product label issue [None]

NARRATIVE: CASE EVENT DATE: 20150622
